FAERS Safety Report 7403601-1 (Version None)
Quarter: 2011Q2

REPORT INFORMATION
  Report Type: 
  Country: None (occurrence: None)
  Receive Date: 20110401
  Receipt Date: 20110321
  Transmission Date: 20111010
  Serious: Yes (Hospitalization)
  Sender: FDA-Public Use
  Company Number: 1000019655

PATIENT
  Age: 22 Hour
  Sex: Male
  Weight: 3.85 kg

DRUGS (1)
  1. ESCITALOPRAM OXALATE [Suspect]
     Dosage: 10 MG (10 MG, 1 IN 1D), TRANSPLACENTAL
     Route: 064
     Dates: end: 20110113

REACTIONS (4)
  - CONVULSION NEONATAL [None]
  - IRRITABILITY [None]
  - NEONATAL RESPIRATORY DISTRESS SYNDROME [None]
  - MATERNAL DRUGS AFFECTING FOETUS [None]
